FAERS Safety Report 9150178 (Version 1)
Quarter: 2013Q1

REPORT INFORMATION
  Report Type: Spontaneous
  Country: US (occurrence: None)
  Receive Date: 20130204
  Receipt Date: 20130204
  Transmission Date: 20140127
  Serious: Yes (Other)
  Sender: FDA-Public Use
  Company Number: US-1196381

PATIENT
  Sex: 0

DRUGS (2)
  1. BSS PLUS INTRAOCULAR SOLUTION [Suspect]
     Route: 031
     Dates: start: 201301, end: 201301
  2. EPINEPHRINE [Concomitant]

REACTIONS (2)
  - Corneal opacity [None]
  - Medication error [None]
